FAERS Safety Report 5824176-4 (Version None)
Quarter: 2008Q3

REPORT INFORMATION
  Report Type: 
  Country: None (occurrence: None)
  Receive Date: 20080718
  Receipt Date: 20080414
  Transmission Date: 20090109
  Serious: Yes (Other)
  Sender: FDA-Public Use
  Company Number: US-WYE-H03626308

PATIENT
  Age: 16 Year
  Sex: Female
  Weight: 59.02 kg

DRUGS (3)
  1. ADVIL PM [Suspect]
     Indication: INSOMNIA
     Dosage: 1 CAPSULE 1X PER 1 DAY, ORAL
     Route: 048
     Dates: start: 20080301, end: 20080301
  2. SINGULAIR [Concomitant]
  3. ADVAIR DISKUS 100/50 [Concomitant]

REACTIONS (2)
  - ASTHENIA [None]
  - NAUSEA [None]
